FAERS Safety Report 19837884 (Version 2)
Quarter: 2021Q3

REPORT INFORMATION
  Report Type: Spontaneous
  Country: US (occurrence: US)
  Receive Date: 20210914
  Receipt Date: 20210920
  Transmission Date: 20211014
  Serious: Yes (Hospitalization)
  Sender: FDA-Public Use
  Company Number: US-BRISTOL-MYERS SQUIBB COMPANY-BMS-2021-091395

PATIENT
  Age: 46 Year
  Sex: Female

DRUGS (1)
  1. SPRYCEL [Suspect]
     Active Substance: DASATINIB
     Indication: CHRONIC MYELOID LEUKAEMIA
     Dosage: 100 MILLIGRAM, DAILY
     Route: 048
     Dates: start: 20210814

REACTIONS (8)
  - Hospitalisation [Unknown]
  - Alopecia [Unknown]
  - Decreased appetite [Unknown]
  - Flushing [Unknown]
  - Rash [Unknown]
  - Fatigue [Unknown]
  - Gastrointestinal disorder [Unknown]
  - Headache [Unknown]
